FAERS Safety Report 7605073-0 (Version None)
Quarter: 2011Q3

REPORT INFORMATION
  Report Type: 
  Country: None (occurrence: None)
  Receive Date: 20110713
  Receipt Date: 20090930
  Transmission Date: 20111222
  Serious: Yes (Other)
  Sender: FDA-Public Use
  Company Number: US-BAYER-200934516NA

PATIENT
  Age: 74 Year
  Sex: Male
  Weight: 79 kg

DRUGS (19)
  1. LASIX [Concomitant]
     Dosage: 20 MG, BID
     Route: 048
  2. CARDURA [Concomitant]
     Dosage: 2 MG, QD
     Route: 048
  3. CALCIUM CHLORIDE [Concomitant]
     Dosage: UNK
     Route: 042
     Dates: start: 20070202
  4. BLOOD CELLS, PACKED HUMAN [Concomitant]
     Dosage: 5 U, UNK
     Dates: start: 20070202
  5. TRASYLOL [Suspect]
     Dosage: 25CC PER HOUR INFUSION
     Route: 042
     Dates: start: 20070202, end: 20070202
  6. COUMADIN [Concomitant]
     Dosage: 2 MG, UNK
     Route: 048
  7. FRESH FROZEN PLASMA [Concomitant]
     Dosage: 6 U, UNK
     Dates: start: 20070202
  8. ATENOLOL [Concomitant]
     Dosage: 100 MG, QD
     Route: 048
  9. PROPOFOL [Concomitant]
     Dosage: UNK
     Route: 042
     Dates: start: 20070202
  10. TRASYLOL [Suspect]
     Dosage: 100 ML CARDIOPULMONARY BYPASS PRIME
     Route: 042
     Dates: start: 20070202, end: 20070202
  11. PROTAMINE SULFATE [Concomitant]
     Dosage: UNK
     Route: 042
     Dates: start: 20070202
  12. TRASYLOL [Suspect]
     Indication: PRODUCT USED FOR UNKNOWN INDICATION
     Dosage: 1 ML (TEST DOSE)
     Route: 042
     Dates: start: 20070202, end: 20070202
  13. MANNITOL [Concomitant]
     Dosage: 25 G BYPASS
     Route: 042
     Dates: start: 20070202, end: 20070202
  14. COLCHICINE [Concomitant]
  15. ACETYLSALICYLIC ACID SRT [Concomitant]
     Dosage: 81 MG, UNK
     Route: 048
  16. FORANE [Concomitant]
     Dosage: UNK
     Route: 042
     Dates: start: 20070202
  17. POTASSIUM [Concomitant]
     Dosage: UNK
     Route: 042
     Dates: start: 20070202
  18. TRASYLOL [Suspect]
     Dosage: 100CC (LOADING DOSE)
     Route: 042
     Dates: start: 20070202, end: 20070202
  19. DOBUTAMINE HCL [Concomitant]
     Dosage: UNK
     Route: 042
     Dates: start: 20070202, end: 20070202

REACTIONS (10)
  - RENAL FAILURE [None]
  - RENAL INJURY [None]
  - STRESS [None]
  - EMOTIONAL DISTRESS [None]
  - ANXIETY [None]
  - UNEVALUABLE EVENT [None]
  - PAIN [None]
  - INJURY [None]
  - FEAR [None]
  - RENAL IMPAIRMENT [None]
